FAERS Safety Report 16890338 (Version 9)
Quarter: 2025Q2

REPORT INFORMATION
  Report Type: Report from Study
  Country: US (occurrence: US)
  Receive Date: 20191007
  Receipt Date: 20250509
  Transmission Date: 20250717
  Serious: Yes (Life-Threatening, Hospitalization, Other)
  Sender: TAKEDA
  Company Number: US-SHIRE-US201932559

PATIENT
  Age: 40 Year
  Sex: Female

DRUGS (11)
  1. PARATHYROID HORMONE [Suspect]
     Active Substance: PARATHYROID HORMONE
     Indication: Hypoparathyroidism
  2. PARATHYROID HORMONE [Suspect]
     Active Substance: PARATHYROID HORMONE
     Indication: Post procedural hypoparathyroidism
     Dosage: 25 MICROGRAM, QD
  3. PARATHYROID HORMONE [Suspect]
     Active Substance: PARATHYROID HORMONE
     Dosage: 50 MICROGRAM, BID
     Dates: start: 20180802
  4. PARATHYROID HORMONE [Suspect]
     Active Substance: PARATHYROID HORMONE
     Dosage: 25 MICROGRAM, QD
     Dates: start: 20190720
  5. PARATHYROID HORMONE [Suspect]
     Active Substance: PARATHYROID HORMONE
     Dosage: 50 MICROGRAM, QD
  6. PARATHYROID HORMONE [Suspect]
     Active Substance: PARATHYROID HORMONE
     Dosage: 50 MICROGRAM, BID
     Dates: start: 20200422
  7. PARATHYROID HORMONE [Suspect]
     Active Substance: PARATHYROID HORMONE
     Dosage: 25 MICROGRAM, QD
  8. PARATHYROID HORMONE [Suspect]
     Active Substance: PARATHYROID HORMONE
     Dosage: 50 MICROGRAM, QD
  9. PARATHYROID HORMONE [Suspect]
     Active Substance: PARATHYROID HORMONE
     Dosage: 75 MICROGRAM, QD
  10. PARATHYROID HORMONE [Suspect]
     Active Substance: PARATHYROID HORMONE
  11. PARATHYROID HORMONE [Suspect]
     Active Substance: PARATHYROID HORMONE

REACTIONS (6)
  - Hypocalcaemia [Unknown]
  - Systemic lupus erythematosus [Recovered/Resolved]
  - Blood calcium abnormal [Recovered/Resolved]
  - COVID-19 [Recovered/Resolved]
  - Recalled product [Recovered/Resolved]
  - Illness [Recovered/Resolved]

NARRATIVE: CASE EVENT DATE: 20220606
